FAERS Safety Report 20292512 (Version 1)
Quarter: 2022Q1

REPORT INFORMATION
  Report Type: Spontaneous
  Country: US (occurrence: None)
  Receive Date: 20220104
  Receipt Date: 20220104
  Transmission Date: 20220423
  Serious: Yes (Other)
  Sender: FDA-Public Use
  Company Number: None

PATIENT
  Sex: Female

DRUGS (1)
  1. NEUPOGEN [Suspect]
     Active Substance: FILGRASTIM
     Indication: Neutropenia
     Dosage: OTHER STRENGTH : 300MCG/ML;?0.6 ML   EVERY WEEK UNDER THE SKIN?
     Route: 058
     Dates: start: 20200714

REACTIONS (5)
  - Chest pain [None]
  - Hypoaesthesia [None]
  - Hypoaesthesia [None]
  - Hepatic pain [None]
  - Abdominal pain [None]
